FAERS Safety Report 26206807 (Version 1)
Quarter: 2025Q4

REPORT INFORMATION
  Report Type: Report from Study
  Country: US (occurrence: US)
  Receive Date: 20251229
  Receipt Date: 20251229
  Transmission Date: 20260117
  Serious: No
  Sender: DECIPHERA PHARMACEUTICALS
  Company Number: US-DECIPHERA PHARMACEUTICALS LLC-2025US001556

PATIENT
  Age: 52 Year
  Sex: Female

DRUGS (2)
  1. ROMVIMZA [Suspect]
     Active Substance: VIMSELTINIB
     Indication: Giant cell tumour of tendon sheath
     Dosage: 30 MILLIGRAM, TWICE WEEKLY
     Dates: start: 20250428, end: 2025
  2. ROMVIMZA [Suspect]
     Active Substance: VIMSELTINIB
     Dosage: UNK (REDUCED DOSE)

REACTIONS (1)
  - Rash [Unknown]

NARRATIVE: CASE EVENT DATE: 20251201
